FAERS Safety Report 16551229 (Version 1)
Quarter: 2019Q3

REPORT INFORMATION
  Report Type: Spontaneous
  Country: PL (occurrence: PL)
  Receive Date: 20190710
  Receipt Date: 20190710
  Transmission Date: 20191004
  Serious: Yes (Other)
  Sender: FDA-Public Use
  Company Number: PL-TEVA-2019-PL-1074992

PATIENT
  Age: 23 Year
  Sex: Male

DRUGS (2)
  1. GABITRIL [Suspect]
     Active Substance: TIAGABINE HYDROCHLORIDE
     Indication: SEIZURE
     Dosage: 45 MILLIGRAM DAILY;
     Route: 065
     Dates: start: 20190701
  2. GABITRIL [Suspect]
     Active Substance: TIAGABINE HYDROCHLORIDE
     Indication: EPILEPSY
     Dosage: DAILY DOSAGE GRADUALLY INCREASED FROM 10 MG TO 40 MG
     Route: 065
     Dates: start: 201812

REACTIONS (4)
  - Eye disorder [Recovered/Resolved]
  - Depression [Not Recovered/Not Resolved]
  - Status epilepticus [Recovered/Resolved]
  - Unresponsive to stimuli [Recovered/Resolved]

NARRATIVE: CASE EVENT DATE: 201905
